FAERS Safety Report 5254218-9 (Version None)
Quarter: 2007Q1

REPORT INFORMATION
  Report Type: 
  Country: None (occurrence: None)
  Receive Date: 20070302
  Receipt Date: 20070228
  Transmission Date: 20070707
  Serious: Yes (Death)
  Sender: FDA-Public Use
  Company Number: US-GLAXOSMITHKLINE-A0565432A

PATIENT
  Age: 38 Year
  Sex: Male
  Weight: 86.4 kg

DRUGS (11)
  1. PAXIL [Suspect]
     Indication: DEPRESSION
     Dosage: 40MG PER DAY
     Route: 048
  2. PAXIL CR [Suspect]
     Indication: DEPRESSION
     Dosage: 25MG PER DAY
     Route: 048
  3. LEXAPRO [Concomitant]
     Dosage: 20MG PER DAY
     Dates: end: 20040304
  4. LOTREL [Concomitant]
  5. PREDNISONE [Concomitant]
  6. VIOXX [Concomitant]
  7. ASPIRIN [Concomitant]
  8. VICODIN [Concomitant]
  9. PANLOR [Concomitant]
  10. SOMA [Concomitant]
  11. XANAX [Concomitant]

REACTIONS (5)
  - ASPIRATION [None]
  - COMPLETED SUICIDE [None]
  - HEAD INJURY [None]
  - HEPATIC CIRRHOSIS [None]
  - HEPATIC STEATOSIS [None]
